FAERS Safety Report 7421372-X (Version None)
Quarter: 2011Q2

REPORT INFORMATION
  Report Type: 
  Country: None (occurrence: None)
  Receive Date: 20110418
  Receipt Date: 20110412
  Transmission Date: 20111010
  Serious: Yes (Hospitalization)
  Sender: FDA-Public Use
  Company Number: NL-TEVA-276411ISR

PATIENT
  Sex: Female
  Weight: 85 kg

DRUGS (3)
  1. ARTHROTEC (DICLOFENAC WITH MISOPROSTOL) [Suspect]
     Indication: PAIN
     Dosage: 150 MILLIGRAM;
     Dates: start: 20110228, end: 20110401
  2. BUDESONIDE [Concomitant]
     Dosage: 9 MILLIGRAM;
     Dates: start: 20110201
  3. ACETAMINOPHEN W/ CODEINE [Suspect]
     Indication: PAIN
     Dosage: 8 DOSAGE FORMS;
     Dates: start: 20110228, end: 20110401

REACTIONS (1)
  - ANGIOEDEMA [None]
